FAERS Safety Report 9143300 (Version 2)
Quarter: 2013Q3

REPORT INFORMATION
  Report Type: Report from Study
  Country: US (occurrence: US)
  Receive Date: 20130306
  Receipt Date: 20130716
  Transmission Date: 20140515
  Serious: Yes (Death, Other)
  Sender: FDA-Public Use
  Company Number: US-ASTELLAS-2013US002396

PATIENT
  Sex: Female
  Weight: 91 kg

DRUGS (12)
  1. ERLOTINIB TABLET [Suspect]
     Indication: NON-SMALL CELL LUNG CANCER
     Dosage: 100 MG, UID/QD
     Route: 048
     Dates: start: 20121227, end: 20130124
  2. ERLOTINIB TABLET [Suspect]
     Dosage: 300 MG, UID/QD
     Route: 048
     Dates: start: 20121126, end: 20121127
  3. ERLOTINIB TABLET [Suspect]
     Dosage: 150 MG, UID/QD
     Route: 048
     Dates: start: 20121128, end: 20121211
  4. ERLOTINIB TABLET [Suspect]
     Dosage: 100 MG, UID/QD
     Route: 048
     Dates: start: 20121126
  5. MK-2206 [Suspect]
     Indication: NON-SMALL CELL LUNG CANCER
     Dosage: 100 MG, UNKNOWN/D
     Route: 065
     Dates: start: 20121218
  6. MK-2206 [Suspect]
     Dosage: 135 MG, UNKNOWN/D
     Route: 048
     Dates: start: 20121126, end: 20121210
  7. ANTIDIARRHEALS, INTESTINAL ANTIINFLAMMATORY/A [Suspect]
     Indication: DIARRHOEA
     Dosage: UNK
     Route: 065
  8. CHERATUSSIN AC [Concomitant]
     Indication: COUGH
     Dosage: 1 TEABAG, UID/QD
     Route: 048
     Dates: start: 201210
  9. FIRST MOUTHWASH BXN [Concomitant]
     Indication: MUCOSAL INFLAMMATION
     Dosage: 15 ML, TID
     Route: 048
     Dates: start: 20121126
  10. MAGNESIUM [Concomitant]
     Indication: HYPOMAGNESAEMIA
     Dosage: 1200 MG, BID
     Route: 048
     Dates: start: 20121120
  11. POTASSIUM [Concomitant]
     Indication: HYPOKALAEMIA
     Dosage: 10 MEQ, UID/QD
     Route: 048
     Dates: start: 201210
  12. TEMAZEPAM [Concomitant]
     Indication: INSOMNIA
     Dosage: 15 MG, QHS
     Route: 048
     Dates: start: 201210

REACTIONS (11)
  - Accidental overdose [Unknown]
  - Malignant neoplasm progression [Fatal]
  - Mucous stools [Unknown]
  - Performance status decreased [Unknown]
  - Dyspnoea exertional [Unknown]
  - Fatigue [Unknown]
  - Diarrhoea [Unknown]
  - Rhinorrhoea [Unknown]
  - Increased upper airway secretion [Unknown]
  - Faeces discoloured [Unknown]
  - Back pain [Not Recovered/Not Resolved]
